FAERS Safety Report 21525479 (Version 1)
Quarter: 2022Q4

REPORT INFORMATION
  Report Type: Spontaneous
  Country: US (occurrence: None)
  Receive Date: 20221028
  Receipt Date: 20221028
  Transmission Date: 20230113
  Serious: Yes (Hospitalization)
  Sender: FDA-Public Use
  Company Number: None

PATIENT
  Age: 67 Year
  Sex: Male
  Weight: 58.6 kg

DRUGS (3)
  1. CISPLATIN [Suspect]
     Active Substance: CISPLATIN
     Dates: start: 20220809, end: 20221010
  2. GEMCITABINE HYDROCHLORIDE [Suspect]
     Active Substance: GEMCITABINE HYDROCHLORIDE
     Dates: start: 20220809, end: 20221010
  3. NEULASTA [Suspect]
     Active Substance: PEGFILGRASTIM
     Dates: start: 20220809, end: 20220930

REACTIONS (13)
  - Bronchial wall thickening [None]
  - Rib fracture [None]
  - Gastric disorder [None]
  - Gastritis [None]
  - Blood sodium decreased [None]
  - Obstructive airways disorder [None]
  - Cough [None]
  - Back pain [None]
  - Asthenia [None]
  - Fatigue [None]
  - Hypotension [None]
  - Spinal cord compression [None]
  - Kyphosis [None]

NARRATIVE: CASE EVENT DATE: 20221017
